FAERS Safety Report 8275853-X (Version None)
Quarter: 2012Q2

REPORT INFORMATION
  Report Type: 
  Country: None (occurrence: None)
  Receive Date: 20120410
  Receipt Date: 20120410
  Transmission Date: 20120825
  Serious: Yes (Other)
  Sender: FDA-Public Use
  Company Number: None

PATIENT
  Sex: Male
  Weight: 25 kg

DRUGS (1)
  1. STRATTERA [Suspect]
     Indication: ATTENTION DEFICIT/HYPERACTIVITY DISORDER
     Dosage: STRATTERA 10 MG QAM ORAL  ONE DOSE ONLY
     Route: 048
     Dates: start: 20120309

REACTIONS (6)
  - MYDRIASIS [None]
  - AGGRESSION [None]
  - SENSORY DISTURBANCE [None]
  - CONFUSIONAL STATE [None]
  - AGITATION [None]
  - PERSONALITY CHANGE [None]
